FAERS Safety Report 10251683 (Version 1)
Quarter: 2014Q2

REPORT INFORMATION
  Report Type: Report from Study
  Country: US (occurrence: US)
  Receive Date: 20140623
  Receipt Date: 20140623
  Transmission Date: 20141212
  Serious: Yes (Other)
  Sender: FDA-Public Use
  Company Number: US-BIOGENIDEC-2014BI059233

PATIENT
  Age: 50 Year
  Sex: Female

DRUGS (1)
  1. AVONEX [Suspect]
     Indication: MULTIPLE SCLEROSIS
     Route: 030
     Dates: start: 19970601, end: 20060826

REACTIONS (4)
  - Humerus fracture [Recovered/Resolved with Sequelae]
  - Fall [Recovered/Resolved]
  - Abasia [Not Recovered/Not Resolved]
  - Balance disorder [Not Recovered/Not Resolved]
